FAERS Safety Report 7965012-X (Version None)
Quarter: 2011Q4

REPORT INFORMATION
  Report Type: 
  Country: None (occurrence: None)
  Receive Date: 20111208
  Receipt Date: 20111128
  Transmission Date: 20120403
  Serious: Yes (Hospitalization)
  Sender: FDA-Public Use
  Company Number: JP-ROCHE-1017850

PATIENT
  Sex: Female
  Weight: 44 kg

DRUGS (9)
  1. CRESTOR [Concomitant]
     Indication: HYPERLIPIDAEMIA
     Route: 048
     Dates: start: 20081111
  2. DECADRON [Concomitant]
     Indication: PROPHYLAXIS OF NAUSEA AND VOMITING
     Route: 041
     Dates: start: 20110726, end: 20110816
  3. MAGMITT [Concomitant]
     Indication: CONSTIPATION
     Route: 048
     Dates: start: 20071019
  4. OXALIPLATIN [Concomitant]
     Indication: COLON CANCER RECURRENT
     Route: 041
     Dates: start: 20110726, end: 20110816
  5. BERIZYM [Concomitant]
     Indication: DECREASED APPETITE
     Route: 048
     Dates: start: 20071019
  6. XELODA [Suspect]
     Indication: COLON CANCER RECURRENT
     Dosage: IT IS ONE ADMINISTERING WEEKLY HOLIDAY MEDICINE FOR TWO WEEKS.
     Route: 048
     Dates: start: 20110727
  7. AVASTIN [Suspect]
     Indication: COLON CANCER RECURRENT
     Route: 041
     Dates: start: 20110726, end: 20110816
  8. RAMELTEON [Concomitant]
     Indication: PROPHYLAXIS OF NAUSEA AND VOMITING
     Route: 048
     Dates: start: 20110816, end: 20110820
  9. KYTRIL [Concomitant]
     Indication: PROPHYLAXIS OF NAUSEA AND VOMITING
     Route: 041
     Dates: start: 20110726, end: 20110816

REACTIONS (1)
  - LARYNGEAL OEDEMA [None]
